FAERS Safety Report 21314259 (Version 1)
Quarter: 2022Q3

REPORT INFORMATION
  Report Type: Spontaneous
  Country: US (occurrence: None)
  Receive Date: 20220909
  Receipt Date: 20220909
  Transmission Date: 20221027
  Serious: No
  Sender: FDA-Public Use
  Company Number: US-ARIS GLOBAL-202109-1703

PATIENT
  Sex: Male

DRUGS (16)
  1. OXERVATE [Suspect]
     Active Substance: CENEGERMIN-BKBJ
     Indication: Neurotrophic keratopathy
     Route: 047
     Dates: start: 20210916
  2. VITAMIN E [Concomitant]
     Active Substance: .ALPHA.-TOCOPHEROL
     Dosage: 100% LIQUID
  3. VITAMIN D3 [Concomitant]
     Active Substance: CHOLECALCIFEROL
     Dosage: 10(400)/ML DROPS
  4. ALLOPURINOL [Concomitant]
     Active Substance: ALLOPURINOL
  5. CARBIDOPA\ENTACAPONE\LEVODOPA [Concomitant]
     Active Substance: CARBIDOPA\ENTACAPONE\LEVODOPA
  6. LEVOTHYROXINE [Concomitant]
     Active Substance: LEVOTHYROXINE
  7. TACROLIMUS [Concomitant]
     Active Substance: TACROLIMUS
  8. PREDNISOLONE-NEPAFENAC [Concomitant]
  9. SELEGILINE HYDROCHLORIDE [Concomitant]
     Active Substance: SELEGILINE HYDROCHLORIDE
  10. ASPIRIN [Concomitant]
     Active Substance: ASPIRIN
  11. VASCEPA [Concomitant]
     Active Substance: ICOSAPENT ETHYL
  12. METOPROLOL SUCCINATE [Concomitant]
     Active Substance: METOPROLOL SUCCINATE
  13. GABAPENTIN [Concomitant]
     Active Substance: GABAPENTIN
  14. METOLAZONE [Concomitant]
     Active Substance: METOLAZONE
  15. FUROSEMIDE [Concomitant]
     Active Substance: FUROSEMIDE
  16. FLUCONAZOLE [Concomitant]
     Active Substance: FLUCONAZOLE

REACTIONS (3)
  - Product dose omission issue [Unknown]
  - Product administration error [Unknown]
  - Periorbital pain [Unknown]
